FAERS Safety Report 5623044-0 (Version None)
Quarter: 2008Q1

REPORT INFORMATION
  Report Type: 
  Country: None (occurrence: None)
  Receive Date: 20080212
  Receipt Date: 20080211
  Transmission Date: 20080703
  Serious: Yes (Other)
  Sender: FDA-Public Use
  Company Number: A0708651A

PATIENT
  Age: 22 Year
  Sex: Female
  Weight: 57.3 kg

DRUGS (3)
  1. ALLI [Suspect]
     Route: 048
     Dates: start: 20080205, end: 20080208
  2. APRI [Suspect]
     Indication: CONTRACEPTION
  3. VITAMIN [Concomitant]

REACTIONS (7)
  - ABDOMINAL PAIN [None]
  - DRUG INTERACTION [None]
  - EMOTIONAL DISTRESS [None]
  - MENORRHAGIA [None]
  - POLYMENORRHOEA [None]
  - RECTAL DISCHARGE [None]
  - VAGINAL HAEMORRHAGE [None]
